FAERS Safety Report 8966247 (Version 2)
Quarter: 2013Q1

REPORT INFORMATION
  Report Type: Report from Study
  Country: NL (occurrence: NL)
  Receive Date: 20121214
  Receipt Date: 20130124
  Transmission Date: 20140127
  Serious: Yes (Hospitalization)
  Sender: FDA-Public Use
  Company Number: NL-GENZYME-CAMP-1002604

PATIENT
  Age: 48 Year
  Sex: Male
  Weight: 78 kg

DRUGS (9)
  1. CAMPATH [Suspect]
     Indication: T-CELL LYMPHOMA
     Dosage: 30 MG, UNK
     Route: 058
     Dates: start: 20121129, end: 20121129
  2. CYCLOPHOSPHAMIDE [Suspect]
     Indication: T-CELL LYMPHOMA
     Dosage: UNK
     Route: 042
     Dates: start: 20121129, end: 20121129
  3. DOXORUBICIN [Suspect]
     Indication: T-CELL LYMPHOMA
     Dosage: UNK
     Route: 042
     Dates: start: 20121129, end: 20121129
  4. VINCRISTINE [Suspect]
     Indication: T-CELL LYMPHOMA
     Dosage: UNK
     Route: 042
     Dates: start: 20121129, end: 20121129
  5. PREDNISONE [Suspect]
     Indication: T-CELL LYMPHOMA
     Dosage: UNK
     Route: 048
     Dates: start: 20121129, end: 20121129
  6. COTRIMOXAZOLE [Concomitant]
     Indication: ANTIBIOTIC PROPHYLAXIS
     Dosage: 960 MG, QD
     Route: 048
     Dates: start: 20121122
  7. VALACICLOVIR [Concomitant]
     Indication: ANTIVIRAL PROPHYLAXIS
     Dosage: 500 MG, TID
     Route: 048
     Dates: start: 20121122
  8. FLUCONAZOLE [Concomitant]
     Indication: ANTIVIRAL PROPHYLAXIS
     Dosage: 700 MG, QD
     Route: 048
     Dates: start: 20121122
  9. ALLOPURINOL [Concomitant]
     Indication: PRODUCT USED FOR UNKNOWN INDICATION
     Dosage: 300 MG, QD
     Route: 048
     Dates: start: 20121122

REACTIONS (1)
  - Anaphylactic reaction [Recovered/Resolved]
